FAERS Safety Report 6688849-6 (Version None)
Quarter: 2010Q2

REPORT INFORMATION
  Report Type: 
  Country: None (occurrence: None)
  Receive Date: 20100420
  Receipt Date: 20100406
  Transmission Date: 20101027
  Serious: Yes (Other)
  Sender: FDA-Public Use
  Company Number: US-ELI_LILLY_AND_COMPANY-US201003003807

PATIENT
  Sex: Male
  Weight: 94.785 kg

DRUGS (8)
  1. EFFIENT [Suspect]
     Indication: STENT PLACEMENT
     Dosage: UNK, DAILY (1/D)
     Route: 065
     Dates: start: 20100125, end: 20100101
  2. EFFIENT [Suspect]
     Dosage: 10 MG, DAILY (1/D)
     Route: 065
     Dates: start: 20100125, end: 20100101
  3. COREG [Concomitant]
     Dosage: 12.5 MG, 2/D
     Route: 048
     Dates: start: 20070101
  4. ASPIRIN [Concomitant]
     Dosage: 325 MG, DAILY (1/D)
     Dates: start: 20070101
  5. IMDUR [Concomitant]
  6. PROTONIX [Concomitant]
     Dosage: 40 MG, DAILY (1/D)
  7. CRESTOR [Concomitant]
     Dosage: 10 MG, DAILY (1/D)
     Route: 048
     Dates: start: 20070101
  8. NEXIUM [Concomitant]
     Dosage: 40 MG, DAILY (1/D)
     Dates: start: 20050101

REACTIONS (1)
  - HAEMOLYTIC ANAEMIA [None]
